FAERS Safety Report 8465709-1 (Version None)
Quarter: 2012Q2

REPORT INFORMATION
  Report Type: 
  Country: None (occurrence: None)
  Receive Date: 20120626
  Receipt Date: 20120618
  Transmission Date: 20120825
  Serious: Yes (Death)
  Sender: FDA-Public Use
  Company Number: US-PFIZER INC-2012148585

PATIENT
  Age: 41 Year
  Sex: Female

DRUGS (4)
  1. KEPPRA [Concomitant]
  2. GABAPENTIN [Concomitant]
  3. VALPROIC ACID [Concomitant]
  4. MORPHINE SULFATE [Suspect]
     Dosage: UNK

REACTIONS (1)
  - ACCIDENTAL POISONING [None]
